FAERS Safety Report 6035010-4 (Version None)
Quarter: 2009Q1

REPORT INFORMATION
  Report Type: 
  Country: None (occurrence: None)
  Receive Date: 20090109
  Receipt Date: 20090109
  Transmission Date: 20090719
  Serious: Yes (Hospitalization, Other)
  Sender: FDA-Public Use
  Company Number: None

PATIENT
  Age: 37 Year
  Sex: Female
  Weight: 56.6996 kg

DRUGS (4)
  1. LAMOTRIGINE [Suspect]
     Indication: CONVULSION
     Dosage: 150 MG 2 X PER DAY PO
     Route: 048
     Dates: start: 20080801, end: 20081208
  2. LEXAPRO [Concomitant]
  3. YAZ [Concomitant]
  4. KEPPRA [Concomitant]

REACTIONS (6)
  - ASTHENIA [None]
  - FATIGUE [None]
  - HEADACHE [None]
  - PARTIAL SEIZURES [None]
  - PRODUCT QUALITY ISSUE [None]
  - SOMNOLENCE [None]
